FAERS Safety Report 13295005 (Version 3)
Quarter: 2018Q4

REPORT INFORMATION
  Report Type: Spontaneous
  Country: US (occurrence: US)
  Receive Date: 20170303
  Receipt Date: 20181023
  Transmission Date: 20190204
  Serious: Yes (Disabling)
  Sender: FDA-Public Use
  Company Number: US-PFIZER INC-2017086574

PATIENT
  Age: 9 Decade
  Sex: Female

DRUGS (2)
  1. ATORVASTATIN CALCIUM. [Suspect]
     Active Substance: ATORVASTATIN CALCIUM
     Dosage: UNK
  2. EZETIMIBE/SIMVASTATIN [Suspect]
     Active Substance: EZETIMIBE\SIMVASTATIN
     Dosage: UNK

REACTIONS (4)
  - Cognitive disorder [Recovering/Resolving]
  - Disorientation [Recovering/Resolving]
  - Amnesia [Recovering/Resolving]
  - Confusional state [Recovering/Resolving]
